FAERS Safety Report 5952794-1 (Version None)
Quarter: 2008Q4

REPORT INFORMATION
  Report Type: 
  Country: None (occurrence: None)
  Receive Date: 20081114
  Receipt Date: 20081017
  Transmission Date: 20090506
  Serious: Yes (Other)
  Sender: FDA-Public Use
  Company Number: US-JNJFOC-20081005246

PATIENT
  Sex: Male
  Weight: 93.9 kg

DRUGS (7)
  1. FENTANYL TRANSDERMAL SYSTEM [Suspect]
     Indication: PAIN
     Route: 062
  2. DURAGESIC-100 [Suspect]
     Indication: PAIN
     Route: 062
  3. TENORMIN [Concomitant]
     Indication: BLOOD PRESSURE
     Dosage: 1 AND A HALF TABLET OF 50 MG.
     Route: 048
  4. FLEXERIL [Concomitant]
     Indication: MUSCLE RELAXANT THERAPY
     Route: 048
  5. MORPHINE SULFATE INJ [Concomitant]
     Indication: PAIN
     Route: 048
  6. ANDROGEL [Concomitant]
     Dosage: 1 PATCH ON TUESDAY, WEDNESDAY, FRIDAY, SATURDAY AND SUNDAY.
     Route: 062
  7. ANDROGEL [Concomitant]
     Indication: HORMONE REPLACEMENT THERAPY
     Dosage: 2 PATCHES EVERY MONDAY AND THURSDAY
     Route: 062

REACTIONS (20)
  - AKATHISIA [None]
  - APPLICATION SITE URTICARIA [None]
  - ARTHRITIS [None]
  - DERMATITIS CONTACT [None]
  - DEVICE LEAKAGE [None]
  - DIARRHOEA [None]
  - DIZZINESS [None]
  - DRUG ADMINISTERED AT INAPPROPRIATE SITE [None]
  - DYSGEUSIA [None]
  - EUPHORIC MOOD [None]
  - FLUSHING [None]
  - HEART RATE INCREASED [None]
  - HYPERHIDROSIS [None]
  - INAPPROPRIATE SCHEDULE OF DRUG ADMINISTRATION [None]
  - MUSCLE SPASMS [None]
  - NAUSEA [None]
  - PAROSMIA [None]
  - PRODUCT QUALITY ISSUE [None]
  - SOMNOLENCE [None]
  - WRONG TECHNIQUE IN DRUG USAGE PROCESS [None]
